FAERS Safety Report 10322078 (Version 2)
Quarter: 2015Q1

REPORT INFORMATION
  Report Type: Other
  Country: US (occurrence: US)
  Receive Date: 20140719
  Receipt Date: 20150323
  Transmission Date: 20150720
  Serious: Yes (Hospitalization, Other)
  Sender: FDA-Public Use
  Company Number: US-GSKPPD-2014GSK033237

PATIENT
  Age: 67 Year
  Sex: Female

DRUGS (6)
  1. CARDIZEM [Concomitant]
     Active Substance: DILTIAZEM HYDROCHLORIDE
  2. AVANDIA [Suspect]
     Active Substance: ROSIGLITAZONE MALEATE
     Indication: DIABETES MELLITUS
     Dosage: DATES OF AVANDIA USE COULD NOT BE CONFIRMED IN RECORDS REVIEWED.
     Route: 048
  3. BUMEX [Concomitant]
     Active Substance: BUMETANIDE
  4. ASPIRIN. [Concomitant]
     Active Substance: ASPIRIN
  5. ALDACTONE [Concomitant]
     Active Substance: SPIRONOLACTONE
  6. MICARDIS [Concomitant]
     Active Substance: TELMISARTAN

REACTIONS (1)
  - Cardiac failure congestive [Recovered/Resolved]

NARRATIVE: CASE EVENT DATE: 20011012
